FAERS Safety Report 23790006 (Version 1)
Quarter: 2024Q2

REPORT INFORMATION
  Report Type: Spontaneous
  Country: US (occurrence: US)
  Receive Date: 20240426
  Receipt Date: 20240426
  Transmission Date: 20240717
  Serious: No
  Sender: FDA-Public Use
  Company Number: US-009507513-2404USA009195

PATIENT
  Age: 28 Year
  Sex: Male

DRUGS (4)
  1. CUBICIN [Suspect]
     Active Substance: DAPTOMYCIN
     Indication: Endocarditis staphylococcal
     Dosage: UNK
  2. CUBICIN [Suspect]
     Active Substance: DAPTOMYCIN
     Indication: Staphylococcal infection
  3. CEFTAROLINE [Concomitant]
     Active Substance: CEFTAROLINE
     Indication: Endocarditis staphylococcal
     Dosage: UNK
  4. CEFTAROLINE [Concomitant]
     Active Substance: CEFTAROLINE
     Indication: Staphylococcal infection

REACTIONS (1)
  - Product use in unapproved indication [Unknown]
